FAERS Safety Report 13763051 (Version 3)
Quarter: 2017Q3

REPORT INFORMATION
  Report Type: Spontaneous
  Country: IT (occurrence: IT)
  Receive Date: 20170718
  Receipt Date: 20170725
  Transmission Date: 20171127
  Serious: Yes (Life-Threatening, Hospitalization, Other)
  Sender: FDA-Public Use
  Company Number: IT-PFIZER INC-2017309047

PATIENT
  Age: 11 Month
  Sex: Male

DRUGS (7)
  1. DOXORUBICIN HCL [Suspect]
     Active Substance: DOXORUBICIN HYDROCHLORIDE
     Indication: HEPATOBLASTOMA
     Dosage: 30 MG/M2, (3 CYCLES, 6 DOSES)
  2. CARBOPLATIN. [Suspect]
     Active Substance: CARBOPLATIN
     Indication: HEPATOBLASTOMA
     Dosage: 6 MG/KG, CYCLIC (4 CYCLES, 4 DOSES)
  3. CARBOPLATIN. [Suspect]
     Active Substance: CARBOPLATIN
     Dosage: 25 MG/KG, CYCLIC (2 CYCLES, 2 DOSES)
  4. VINCRISTINE SULFATE. [Suspect]
     Active Substance: VINCRISTINE SULFATE
     Indication: HEPATOBLASTOMA
     Dosage: 0.05 MG/KG, CYCLIC (2 CYCLES, 5 DOSES)
  5. CISPLATIN. [Suspect]
     Active Substance: CISPLATIN
     Indication: HEPATOBLASTOMA
     Dosage: 70 MG/M2, CYCLIC (3 CYCLES, 9 DOSES ADMINISTERED)
  6. 5-FLUOROURACIL [Suspect]
     Active Substance: FLUOROURACIL
     Indication: HEPATOBLASTOMA
     Dosage: 33 MG/KG, CYCLIC (2 CYCLES, 6 DOSES)
  7. DOXORUBICIN HCL [Suspect]
     Active Substance: DOXORUBICIN HYDROCHLORIDE
     Dosage: 0.83 MG/KG, (4 CYCLES, 10 DOSES)

REACTIONS (2)
  - Thrombocytopenia neonatal [Recovered/Resolved]
  - Sepsis [Recovered/Resolved]
